FAERS Safety Report 4589369-5 (Version None)
Quarter: 2005Q1

REPORT INFORMATION
  Report Type: 
  Country: None (occurrence: None)
  Receive Date: 20050223
  Receipt Date: 20050215
  Transmission Date: 20050727
  Serious: Yes (Hospitalization)
  Sender: FDA-Public Use
  Company Number: DE-BRISTOL-MYERS SQUIBB COMPANY-12862488

PATIENT
  Age: 29 Year
  Sex: Male

DRUGS (7)
  1. TAXOL [Suspect]
     Indication: GERM CELL CANCER
     Dates: start: 20050129, end: 20050206
  2. CISPLATIN [Suspect]
     Dates: start: 20050124, end: 20050206
  3. BLEOMYCIN [Suspect]
     Dates: start: 20050124, end: 20050206
  4. ETOPOSIDE [Suspect]
     Dates: start: 20050129, end: 20050206
  5. RANITIDINE [Concomitant]
     Dates: start: 20050129, end: 20050129
  6. TAVEGIL [Concomitant]
     Dates: start: 20050129, end: 20050129
  7. DEXAMETHASONE [Concomitant]
     Dates: start: 20050129, end: 20050209

REACTIONS (1)
  - LEUKOPENIA [None]
